FAERS Safety Report 8592509-4 (Version None)
Quarter: 2012Q3

REPORT INFORMATION
  Report Type: 
  Country: None (occurrence: None)
  Receive Date: 20120814
  Receipt Date: 20120810
  Transmission Date: 20120928
  Serious: Yes (Hospitalization)
  Sender: FDA-Public Use
  Company Number: PHHO2012BE011735

PATIENT
  Age: 51 Year
  Sex: Female

DRUGS (8)
  1. NEORAL [Suspect]
     Indication: RENAL TRANSPLANT
     Dosage: 200 MG, BID
     Route: 048
     Dates: start: 20110816, end: 20110905
  2. MYFORTIC [Suspect]
     Dosage: UNK
     Route: 048
     Dates: start: 20111007
  3. MEDROL [Concomitant]
     Dosage: UNK
     Dates: start: 20110920
  4. EVEROLIMUS [Suspect]
     Indication: RENAL TRANSPLANT
     Dosage: UNK
     Dates: start: 20110913, end: 20110922
  5. MYFORTIC [Suspect]
     Indication: RENAL TRANSPLANT
     Dosage: 1800 MG, BID
     Route: 048
     Dates: start: 20110610, end: 20110912
  6. MEDROL [Concomitant]
     Indication: RENAL TRANSPLANT
     Dosage: 4 MG, UNK
     Dates: start: 20110804, end: 20110919
  7. EVEROLIMUS [Suspect]
     Dosage: UNK
     Route: 048
     Dates: start: 20110913, end: 20110922
  8. NEORAL [Suspect]
     Dosage: UNK
     Route: 048
     Dates: start: 20110922

REACTIONS (1)
  - NEUTROPENIA [None]
